FAERS Safety Report 9590697 (Version 1)
Quarter: 2013Q4

REPORT INFORMATION
  Report Type: Spontaneous
  Country: US (occurrence: US)
  Receive Date: 20131003
  Receipt Date: 20131003
  Transmission Date: 20140711
  Serious: No
  Sender: FDA-Public Use
  Company Number: US-AMGEN-USASP2012075493

PATIENT
  Sex: Female

DRUGS (16)
  1. ENBREL [Suspect]
     Indication: SYSTEMIC LUPUS ERYTHEMATOSUS
     Dosage: 50 MG, QWK
     Route: 058
  2. SINGULAIR [Concomitant]
     Dosage: 4 MG, UNK
  3. PLAQUENIL                          /00072602/ [Concomitant]
     Dosage: 200 MG, UNK
  4. ZYRTEC ALLERGY [Concomitant]
     Dosage: 10 MG, UNK
  5. METHOTREXATE [Concomitant]
     Dosage: 2.5 MG, UNK
  6. LIPITOR [Concomitant]
     Dosage: 10 MG, UNK
  7. WELLBUTRIN [Concomitant]
     Dosage: 100 MG, UNK
  8. VITAMIN C                          /00008001/ [Concomitant]
     Dosage: 250 MG, UNK
  9. ZANTAC [Concomitant]
     Dosage: 150 MG, UNK
  10. CELEXA                             /00582602/ [Concomitant]
     Dosage: 10 MG, UNK
  11. CALCIUM [Concomitant]
     Dosage: 500 UNK, UNK
  12. MULTIVITAMINS, PLAIN [Concomitant]
     Dosage: UNK
  13. ASPIRIN [Concomitant]
     Dosage: 81 MG, UNK
  14. LEVOXYL [Concomitant]
     Dosage: 100 MUG, UNK
  15. FOLIC ACID [Concomitant]
     Dosage: 5 MG, UNK
  16. HYDROCHLOROTHIAZIDE WITH TRIAMTERENE [Concomitant]
     Dosage: 25-50 MG

REACTIONS (1)
  - Herpes zoster [Unknown]
